FAERS Safety Report 6381819-7 (Version None)
Quarter: 2009Q3

REPORT INFORMATION
  Report Type: 
  Country: None (occurrence: None)
  Receive Date: 20090930
  Receipt Date: 20090923
  Transmission Date: 20100115
  Serious: Yes (Other)
  Sender: FDA-Public Use
  Company Number: US-JNJFOC-20090907517

PATIENT
  Age: 21 Month
  Sex: Female
  Weight: 10.89 kg

DRUGS (2)
  1. TYLENOL (CAPLET) [Suspect]
     Route: 048
  2. TYLENOL (CAPLET) [Suspect]
     Indication: PYREXIA
     Dosage: FOUR HOURS APART
     Route: 048

REACTIONS (1)
  - FEBRILE CONVULSION [None]
